FAERS Safety Report 23965322 (Version 2)
Quarter: 2024Q3

REPORT INFORMATION
  Report Type: Spontaneous
  Country: US (occurrence: US)
  Receive Date: 20240612
  Receipt Date: 20240702
  Transmission Date: 20241017
  Serious: Yes (Life-Threatening, Hospitalization, Other)
  Sender: BRISTOL MYERS SQUIBB
  Company Number: US-BRISTOL-MYERS SQUIBB COMPANY-2024-093585

PATIENT
  Age: 81 Year
  Sex: Male

DRUGS (21)
  1. POMALYST [Suspect]
     Active Substance: POMALIDOMIDE
     Indication: Plasma cell myeloma
     Dosage: DAILYX21 DAYS, 7OFF EACH 28DAY CYCLE
     Route: 048
     Dates: end: 20240604
  2. ISATUXIMAB [Concomitant]
     Active Substance: ISATUXIMAB
  3. DEXAMETHASONE [Concomitant]
     Active Substance: DEXAMETHASONE
  4. NORVASC [Concomitant]
     Active Substance: AMLODIPINE BESYLATE
     Indication: Hypertension
     Route: 048
     Dates: end: 20240516
  5. PROTONIX [Concomitant]
     Active Substance: PANTOPRAZOLE SODIUM
     Dosage: BEFORE BREAKFAST
     Route: 048
     Dates: start: 20240321, end: 20240516
  6. ACETAMINOPHEN [Concomitant]
     Active Substance: ACETAMINOPHEN
  7. ALBUTEROL [Concomitant]
     Active Substance: ALBUTEROL
  8. ARTIFICIAL TEARS [CARMELLOSE SODIUM] [Concomitant]
  9. BENZOCAINE-MENTHOL [Concomitant]
  10. BISACODYL [Concomitant]
     Active Substance: BISACODYL
  11. CALCIUM CARBONATE [Concomitant]
     Active Substance: CALCIUM CARBONATE
  12. DEXTROMETHORPHAN\GUAIFENESIN [Concomitant]
     Active Substance: DEXTROMETHORPHAN\GUAIFENESIN
  13. IBUPROFEN [Concomitant]
     Active Substance: IBUPROFEN
  14. MAGNESIUM HYDROXIDE [Concomitant]
     Active Substance: MAGNESIUM HYDROXIDE
  15. MELATONIN [Concomitant]
     Active Substance: MELATONIN
  16. ONDANSETRON [Concomitant]
     Active Substance: ONDANSETRON
  17. POLYETHYLENE GLYCOLS [Concomitant]
     Active Substance: POLYETHYLENE GLYCOLS
  18. PROCHLORPERAZINE [Concomitant]
     Active Substance: PROCHLORPERAZINE
  19. SENNA LEAF [Concomitant]
     Active Substance: SENNA LEAF
  20. TRAZODONE [Concomitant]
     Active Substance: TRAZODONE HYDROCHLORIDE
  21. ALUMINUM HYDROXIDE\DIMETHICONE\MAGNESIUM HYDROXIDE [Concomitant]
     Active Substance: ALUMINUM HYDROXIDE\DIMETHICONE\MAGNESIUM HYDROXIDE

REACTIONS (12)
  - Pulmonary sepsis [Unknown]
  - Metastatic malignant melanoma [Unknown]
  - Hypotension [Unknown]
  - Acute respiratory failure [Unknown]
  - Leukopenia [Unknown]
  - Thrombocytopenia [Unknown]
  - Anaemia [Recovering/Resolving]
  - Fall [Unknown]
  - Hyponatraemia [Recovered/Resolved]
  - Hypovolaemia [Unknown]
  - Bone lesion [Unknown]
  - Pneumonia [Unknown]

NARRATIVE: CASE EVENT DATE: 20231229
